FAERS Safety Report 25588376 (Version 1)
Quarter: 2025Q3

REPORT INFORMATION
  Report Type: Spontaneous
  Country: US (occurrence: None)
  Receive Date: 20250722
  Receipt Date: 20250722
  Transmission Date: 20251021
  Serious: No
  Sender: BANNER
  Company Number: US-PTA-006087

PATIENT

DRUGS (1)
  1. NAPROXEN [Suspect]
     Active Substance: NAPROXEN
     Indication: Tumour pain

REACTIONS (2)
  - Drug hypersensitivity [Unknown]
  - Drug effective for unapproved indication [Unknown]
